FAERS Safety Report 5720448-2 (Version None)
Quarter: 2008Q2

REPORT INFORMATION
  Report Type: 
  Country: None (occurrence: None)
  Receive Date: 20080428
  Receipt Date: 20080416
  Transmission Date: 20081010
  Serious: Yes (Death)
  Sender: FDA-Public Use
  Company Number: FR-PFIZER INC-2008034366

PATIENT
  Sex: Female

DRUGS (10)
  1. MEDROL [Suspect]
     Indication: BRONCHITIS
     Route: 048
     Dates: start: 20071223, end: 20071228
  2. ROCEPHIN [Suspect]
     Indication: BRONCHITIS
     Route: 030
  3. ASPIRIN [Suspect]
     Indication: PROPHYLAXIS
     Route: 048
  4. CARDENSIEL [Suspect]
     Indication: MYOCARDIAL ISCHAEMIA
     Route: 048
  5. IKOREL [Suspect]
     Indication: CORONARY ARTERY INSUFFICIENCY
     Route: 048
  6. TRIATEC [Suspect]
     Indication: MYOCARDIAL ISCHAEMIA
     Route: 048
  7. FUROSEMIDE [Concomitant]
     Indication: MYOCARDIAL ISCHAEMIA
     Route: 048
  8. LEVOTHYROXINE SODIUM [Concomitant]
     Route: 048
  9. OMEPRAZOLE [Concomitant]
     Route: 048
  10. CRESTOR [Concomitant]
     Indication: PROPHYLAXIS
     Route: 048

REACTIONS (5)
  - DERMATITIS BULLOUS [None]
  - DYSPNOEA [None]
  - GENERALISED ERYTHEMA [None]
  - HYPOTHERMIA [None]
  - OEDEMA [None]
